FAERS Safety Report 6100380-5 (Version None)
Quarter: 2009Q1

REPORT INFORMATION
  Report Type: 
  Country: None (occurrence: None)
  Receive Date: 20090303
  Receipt Date: 20090227
  Transmission Date: 20090719
  Serious: Yes (Death, Other)
  Sender: FDA-Public Use
  Company Number: PHHY2008JP31577

PATIENT
  Sex: Male
  Weight: 38 kg

DRUGS (3)
  1. ZOMETA [Suspect]
     Indication: MULTIPLE MYELOMA
     Dosage: 16 MG (4 TIMES OF 4 MG)
     Route: 042
     Dates: start: 20060720, end: 20061012
  2. AREDIA [Suspect]
     Indication: MULTIPLE MYELOMA
     Dosage: 45 MG (INTERVAL NOT SPECIFIED), 13 DOSIS
     Route: 042
     Dates: start: 20050104, end: 20060623
  3. THALIDOMIDE [Concomitant]
     Indication: MULTIPLE MYELOMA

REACTIONS (7)
  - BONE DISORDER [None]
  - BONE LESION [None]
  - ORAL MUCOSAL EXFOLIATION [None]
  - OSTEONECROSIS [None]
  - PAIN IN JAW [None]
  - PNEUMONIA [None]
  - TOOTH LOSS [None]
